FAERS Safety Report 9015193 (Version 1)
Quarter: 2013Q1

REPORT INFORMATION
  Report Type: Spontaneous
  Country: US (occurrence: None)
  Receive Date: 20130103
  Receipt Date: 20130103
  Transmission Date: 20140127
  Serious: Yes (Hospitalization)
  Sender: FDA-Public Use
  Company Number: JPI-P-028490

PATIENT
  Age: 31 Year
  Sex: Male

DRUGS (6)
  1. XYREM [Suspect]
     Indication: NARCOLEPSY
     Dosage: (2.25 GM, 2 IN 1 D)
     Route: 048
     Dates: start: 20120330
  2. MODAFINIL [Concomitant]
  3. CITALOPRAM HYDROBROMIDE [Concomitant]
  4. PANTOPRAZOLE SODIUM [Concomitant]
  5. ATORVASTATIN CALCIUM [Concomitant]
  6. FENOFIBRATE [Concomitant]

REACTIONS (3)
  - Muscle strain [None]
  - Procedural pain [None]
  - Orchidectomy [None]
